FAERS Safety Report 9421729 (Version 2)
Quarter: 2013Q3

REPORT INFORMATION
  Report Type: Spontaneous
  Country: US (occurrence: US)
  Receive Date: 20130726
  Receipt Date: 20130730
  Transmission Date: 20140515
  Serious: No
  Sender: FDA-Public Use
  Company Number: US-009507513-1307USA003234

PATIENT
  Age: 49 Year
  Sex: Male

DRUGS (4)
  1. VICTRELIS [Suspect]
     Dosage: 800 MG, TID
     Route: 048
  2. PEGASYS [Suspect]
  3. RIBAPAK [Suspect]
  4. CYANOCOBALAMIN [Concomitant]

REACTIONS (2)
  - Dizziness exertional [Unknown]
  - Decreased appetite [Unknown]
